FAERS Safety Report 21608626 (Version 4)
Quarter: 2022Q4

REPORT INFORMATION
  Report Type: Spontaneous
  Country: US (occurrence: US)
  Receive Date: 20221117
  Receipt Date: 20221207
  Transmission Date: 20230113
  Serious: No
  Sender: FDA-Public Use
  Company Number: US-PFIZER INC-PV202200104178

PATIENT
  Age: 56 Year
  Sex: Female

DRUGS (4)
  1. AZITHROMYCIN [Suspect]
     Active Substance: AZITHROMYCIN
     Indication: Disseminated mycobacterium avium complex infection
     Dosage: 500 MG, 1X/DAY (500 MG Q DAY FOR 3 YEARS)
     Route: 048
  2. MYCOBUTIN [Suspect]
     Active Substance: RIFABUTIN
     Indication: Disseminated mycobacterium avium complex infection
     Dosage: 150 MG
     Route: 048
  3. MYCOBUTIN [Suspect]
     Active Substance: RIFABUTIN
     Dosage: 300 MG, 1X/DAY, (300 MG Q DAY X 90 DAYS)
  4. RIFABUTIN [Suspect]
     Active Substance: RIFABUTIN
     Indication: Disseminated mycobacterium avium complex infection
     Dosage: 300 MG, 1X/DAY

REACTIONS (6)
  - Off label use [Unknown]
  - Intentional product use issue [Unknown]
  - Neck pain [Unknown]
  - Illness [Unknown]
  - Weight decreased [Unknown]
  - Impaired driving ability [Unknown]
